FAERS Safety Report 10687953 (Version 1)
Quarter: 2014Q4

REPORT INFORMATION
  Report Type: Spontaneous
  Country: US (occurrence: None)
  Receive Date: 20141231
  Receipt Date: 20141231
  Transmission Date: 20150529
  Serious: No
  Sender: FDA-Public Use
  Company Number: None

PATIENT
  Age: 52 Year
  Sex: Female
  Weight: 84.82 kg

DRUGS (1)
  1. LEVOFLOXACIN 500MG TEVA [Suspect]
     Active Substance: LEVOFLOXACIN
     Indication: URINARY TRACT INFECTION
     Dosage: 500 MG 1 TABLET ONCE DAILY TAKEN BY MOUTH
     Route: 048
     Dates: start: 20141225, end: 20141230

REACTIONS (2)
  - Muscle fatigue [None]
  - Depression [None]

NARRATIVE: CASE EVENT DATE: 20141230
